FAERS Safety Report 14762976 (Version 2)
Quarter: 2018Q2

REPORT INFORMATION
  Report Type: Other
  Country: DE (occurrence: DE)
  Receive Date: 20180416
  Receipt Date: 20180417
  Transmission Date: 20180711
  Serious: Yes (Hospitalization, Other)
  Sender: FDA-Public Use
  Company Number: DE-DEXPHARM-20180254

PATIENT
  Age: 78 Year
  Sex: Female

DRUGS (7)
  1. OMEPRAZOLE. [Suspect]
     Active Substance: OMEPRAZOLE
  2. SILYMARIN [Concomitant]
     Active Substance: DIETARY SUPPLEMENT\HERBALS\MILK THISTLE
  3. URSODEOXYCHLIC ACID [Concomitant]
  4. IBUPROFEN. [Suspect]
     Active Substance: IBUPROFEN
  5. ASPIRIN. [Suspect]
     Active Substance: ASPIRIN
  6. FLUPIRTINE [Suspect]
     Active Substance: FLUPIRTINE
  7. LISINOPRIL. [Suspect]
     Active Substance: LISINOPRIL

REACTIONS (1)
  - Acute hepatic failure [Recovering/Resolving]
